FAERS Safety Report 5698418-2 (Version None)
Quarter: 2008Q2

REPORT INFORMATION
  Report Type: 
  Country: None (occurrence: None)
  Receive Date: 20080408
  Receipt Date: 20080403
  Transmission Date: 20081010
  Serious: Yes (Other)
  Sender: FDA-Public Use
  Company Number: US-GENENTECH-257657

PATIENT
  Sex: Female
  Weight: 60.317 kg

DRUGS (12)
  1. BEVACIZUMAB [Suspect]
     Indication: GLIOBLASTOMA MULTIFORME
     Dosage: 700 MG, Q2W
     Route: 042
     Dates: start: 20061027
  2. LOVENOX [Concomitant]
     Indication: THROMBOSIS PROPHYLAXIS
     Dates: start: 20060609
  3. ZETIA [Concomitant]
     Indication: HYPERCHOLESTEROLAEMIA
  4. ACTONEL [Concomitant]
     Indication: OSTEOPOROSIS PROPHYLAXIS
  5. METFORMIN HCL [Concomitant]
     Indication: DIABETES MELLITUS
     Dates: start: 20060401
  6. GLUCOTROL [Concomitant]
     Indication: DIABETES MELLITUS
     Dates: start: 20060504
  7. BACTRIM [Concomitant]
     Indication: INFECTION PROPHYLAXIS
     Dates: start: 20060401
  8. TYLENOL (CAPLET) [Concomitant]
     Indication: PROPHYLAXIS
     Dosage: UNK, UNK
     Dates: start: 20061026
  9. HEPARIN [Concomitant]
     Indication: PROPHYLAXIS
     Dates: start: 20061031, end: 20061031
  10. NORVASC [Concomitant]
     Indication: DRUG USE FOR UNKNOWN INDICATION
     Dates: start: 20070101
  11. FELDENE [Concomitant]
     Indication: MUSCULOSKELETAL PAIN
     Dates: start: 20070216
  12. NAPROXEN [Concomitant]
     Indication: MUSCULOSKELETAL PAIN
     Dates: start: 20070126

REACTIONS (1)
  - CEREBRAL HAEMORRHAGE [None]
